FAERS Safety Report 19076140 (Version 1)
Quarter: 2021Q1

REPORT INFORMATION
  Report Type: Other
  Country: CA (occurrence: CA)
  Receive Date: 20210330
  Receipt Date: 20210330
  Transmission Date: 20210420
  Serious: Yes (Hospitalization)
  Sender: FDA-Public Use
  Company Number: CA-CELLTRION INC.-2021CA003954

PATIENT

DRUGS (19)
  1. RITUXIMAB (UNKNOWN) [Suspect]
     Active Substance: RITUXIMAB
     Indication: RHEUMATOID ARTHRITIS
     Dosage: 1000.0 MILLIGRAM
     Route: 042
  2. DEXILANT [Concomitant]
     Active Substance: DEXLANSOPRAZOLE
     Dosage: 30.0 MILLIGRAM, 1 EVERY 1 DAY
     Route: 065
  3. FUCIDIN [FUSIDIC ACID] [Concomitant]
     Active Substance: FUSIDIC ACID
  4. METHYLPREDNISOLONE SODIUM SUCCINATE. [Concomitant]
     Active Substance: METHYLPREDNISOLONE SODIUM SUCCINATE
     Dosage: 100.0 MILLIGRAM
     Route: 042
  5. MOXIFLOXACIN HYDROCHLORIDE. [Concomitant]
     Active Substance: MOXIFLOXACIN HYDROCHLORIDE
  6. RITUXIMAB (UNKNOWN) [Suspect]
     Active Substance: RITUXIMAB
     Indication: PULMONARY FIBROSIS
  7. BENADRYL [Concomitant]
     Active Substance: DIPHENHYDRAMINE HYDROCHLORIDE
     Dosage: 50.0 MILLIGRAM
     Route: 048
  8. ERGOCALCIFEROL. [Concomitant]
     Active Substance: ERGOCALCIFEROL
     Dosage: 400.0 IU (INTERNATIONAL UNIT), 2 EVERY 1 DAY
     Route: 065
  9. TRAMADOL. [Concomitant]
     Active Substance: TRAMADOL
  10. XELJANZ [Concomitant]
     Active Substance: TOFACITINIB CITRATE
     Dosage: 5.0 MILLIGRAM, 2 EVERY 1 DAY
     Route: 065
  11. CALCIUM [Concomitant]
     Active Substance: CALCIUM
     Dosage: 500.0 MILLIGRAM, 2 EVERY 1 DAY
     Route: 065
  12. CITALOPRAM [Concomitant]
     Active Substance: CITALOPRAM HYDROBROMIDE
     Dosage: 20.0 MILLIGRAM, 1 EVERY 1 DAY
     Route: 065
  13. PREDNISONE. [Concomitant]
     Active Substance: PREDNISONE
     Dosage: 10.0 MILLIGRAM, 1 EVERY 1 DAY
     Route: 065
  14. ESTRACE [Concomitant]
     Active Substance: ESTRADIOL
     Dosage: 0.5 MILLIGRAM, 1 EVERY 1 DAY
     Route: 065
  15. CYCLOBENZAPRINE HYDROCHLORIDE. [Concomitant]
     Active Substance: CYCLOBENZAPRINE HYDROCHLORIDE
     Dosage: 10.0 MILLIGRAM, 1 EVERY 1 DAY
     Route: 065
  16. IRBESARTAN. [Concomitant]
     Active Substance: IRBESARTAN
     Dosage: UNK, 1 EVERY 1 DAY
     Route: 065
  17. PROLIA [Concomitant]
     Active Substance: DENOSUMAB
     Indication: OSTEOPOROSIS
     Dosage: UNK, 1 EVERY 6 MONTHS
     Route: 058
  18. SALVENT [SALBUTAMOL] [Concomitant]
     Dosage: 200.0 MILLIGRAM, 4 EVERY 1 DAY
     Route: 065
  19. TYLENOL [Concomitant]
     Active Substance: ACETAMINOPHEN
     Dosage: 650.0 MILLIGRAM
     Route: 048

REACTIONS (8)
  - Intentional product use issue [Unknown]
  - Oxygen saturation decreased [Unknown]
  - Off label use [Unknown]
  - Blood pressure systolic abnormal [Unknown]
  - Blood pressure systolic increased [Unknown]
  - Heart rate increased [Unknown]
  - Pneumonia [Unknown]
  - Heart valve incompetence [Unknown]
